FAERS Safety Report 5672450-7 (Version None)
Quarter: 2008Q1

REPORT INFORMATION
  Report Type: 
  Country: None (occurrence: None)
  Receive Date: 20080318
  Receipt Date: 20080318
  Transmission Date: 20080703
  Serious: Yes (Other)
  Sender: FDA-Public Use
  Company Number: None

PATIENT
  Sex: Male
  Weight: 68 kg

DRUGS (1)
  1. REMICADE [Suspect]
     Indication: COLITIS ULCERATIVE
     Dosage: 400MG EVERY 8 WEEKS IV DRIP
     Route: 041
     Dates: start: 20061226, end: 20080314

REACTIONS (4)
  - ANAPHYLACTIC REACTION [None]
  - EYE SWELLING [None]
  - GENERALISED ERYTHEMA [None]
  - URTICARIA [None]
